FAERS Safety Report 9431874 (Version 2)
Quarter: 2016Q4

REPORT INFORMATION
  Report Type: Spontaneous
  Country: JP (occurrence: JP)
  Receive Date: 20130731
  Receipt Date: 20161208
  Transmission Date: 20170207
  Serious: Yes (Other)
  Sender: FDA-Public Use
  Company Number: PHHY2013JP074229

PATIENT
  Age: 55 Year
  Sex: Female

DRUGS (4)
  1. IMATINIB [Suspect]
     Active Substance: IMATINIB
     Dosage: 100 MG, QD
     Route: 048
  2. IMATINIB [Suspect]
     Active Substance: IMATINIB
     Dosage: 200 MG, QD
     Route: 048
  3. IMATINIB [Suspect]
     Active Substance: IMATINIB
     Dosage: 200 MG, QD
     Route: 048
  4. IMATINIB [Suspect]
     Active Substance: IMATINIB
     Indication: GASTROINTESTINAL STROMAL TUMOUR
     Dosage: 200 MG, PER DAY
     Route: 048

REACTIONS (9)
  - Malignant neoplasm progression [Unknown]
  - Gastrointestinal stromal tumour [Unknown]
  - Fatigue [Unknown]
  - Rectal cancer [Unknown]
  - Second primary malignancy [Unknown]
  - Therapeutic response decreased [Not Recovered/Not Resolved]
  - Metastases to abdominal wall [Unknown]
  - Malaise [Unknown]
  - Decreased appetite [Unknown]
